FAERS Safety Report 5128202-X (Version None)
Quarter: 2006Q4

REPORT INFORMATION
  Report Type: 
  Country: None (occurrence: None)
  Receive Date: 20061011
  Receipt Date: 20060920
  Transmission Date: 20070319
  Serious: Yes (Hospitalization, Other)
  Sender: FDA-Public Use
  Company Number: MRN-2006-045

PATIENT
  Age: 63 Year
  Sex: Male
  Weight: 70 kg

DRUGS (3)
  1. PREDNISOLONE [Suspect]
     Indication: FAT EMBOLISM
     Dosage: 20 MG DAILY ORAL
     Route: 048
  2. ORAPRED [Suspect]
  3. ANTIHYPERTENSIVE [Concomitant]

REACTIONS (27)
  - ANAEMIA [None]
  - BLOOD CHLORIDE DECREASED [None]
  - BLOOD CHOLESTEROL INCREASED [None]
  - BLOOD PH INCREASED [None]
  - BLOOD PHOSPHORUS DECREASED [None]
  - BLOOD PRESSURE SYSTOLIC INCREASED [None]
  - BLOOD SODIUM DECREASED [None]
  - CONJUNCTIVAL DISORDER [None]
  - CYTOMEGALOVIRUS INFECTION [None]
  - DRUG INEFFECTIVE [None]
  - FUNGAL INFECTION [None]
  - GENITAL RASH [None]
  - GLOSSITIS [None]
  - HERPES SIMPLEX [None]
  - IMMUNE SYSTEM DISORDER [None]
  - LYMPHOCYTE PERCENTAGE DECREASED [None]
  - MONOCYTE PERCENTAGE DECREASED [None]
  - MOUTH ULCERATION [None]
  - NEUTROPHIL PERCENTAGE INCREASED [None]
  - OCCULT BLOOD POSITIVE [None]
  - PCO2 DECREASED [None]
  - PNEUMOCYSTIS JIROVECI PNEUMONIA [None]
  - PO2 DECREASED [None]
  - PROTEIN URINE PRESENT [None]
  - RENAL FAILURE [None]
  - ULCER [None]
  - URINARY CASTS [None]
